FAERS Safety Report 8477329 (Version 2)
Quarter: 2012Q4

REPORT INFORMATION
  Report Type: 
  Country: ES (occurrence: ES)
  Receive Date: 20120327
  Receipt Date: 20121102
  Transmission Date: 20130627
  Serious: Yes (Death, Other)
  Sender: FDA-Public Use
  Company Number: ES-RANBAXY-2012RR-54047

PATIENT
  Age: 22 Year
  Sex: Male

DRUGS (2)
  1. AMOXICILLIN [Suspect]
     Indication: PHARYNGOTONSILLITIS
     Dosage: UNK
     Route: 065
     Dates: start: 2009
  2. AMOXICILLIN [Suspect]
     Indication: PRODUCT USED FOR UNKNOWN INDICATION
     Dosage: UNK
     Route: 048
     Dates: start: 2010

REACTIONS (1)
  - Henoch-Schonlein purpura [Recovered/Resolved]
